FAERS Safety Report 12194706 (Version 1)
Quarter: 2016Q1

REPORT INFORMATION
  Report Type: Report from Study
  Country: IT (occurrence: IT)
  Receive Date: 20160321
  Receipt Date: 20160321
  Transmission Date: 20160526
  Serious: Yes (Death, Other)
  Sender: FDA-Public Use
  Company Number: IT-CELGENE-083-21880-12100246

PATIENT

DRUGS (6)
  1. THALIDOMIDE CELGENE [Suspect]
     Active Substance: THALIDOMIDE
     Indication: AMYLOIDOSIS
     Route: 048
  2. REVLIMID [Suspect]
     Active Substance: LENALIDOMIDE
     Indication: AMYLOIDOSIS
     Route: 048
  3. CYCLOPHOSPHAMIDE. [Suspect]
     Active Substance: CYCLOPHOSPHAMIDE
     Indication: AMYLOIDOSIS
     Dosage: 500 MILLIGRAM
     Route: 065
  4. REVLIMID [Suspect]
     Active Substance: LENALIDOMIDE
     Route: 048
  5. DEXAMETHASONE. [Suspect]
     Active Substance: DEXAMETHASONE
     Indication: AMYLOIDOSIS
     Dosage: 40, 20 MG
     Route: 065
  6. ASPIRINE [Concomitant]
     Active Substance: ASPIRIN
     Indication: THROMBOSIS PROPHYLAXIS
     Route: 065

REACTIONS (13)
  - Amyloidosis [Fatal]
  - End stage renal disease [Unknown]
  - Renal failure [Unknown]
  - No therapeutic response [Unknown]
  - Fluid retention [Unknown]
  - Glomerular filtration rate decreased [Unknown]
  - Neutropenia [Unknown]
  - Rash [Unknown]
  - Sudden death [Fatal]
  - Cardiac failure [Fatal]
  - Hepatic failure [Fatal]
  - Thrombocytopenia [Unknown]
  - Cytopenia [Unknown]

NARRATIVE: CASE EVENT DATE: 2008
